FAERS Safety Report 24387233 (Version 1)
Quarter: 2024Q4

REPORT INFORMATION
  Report Type: Spontaneous
  Country: US (occurrence: US)
  Receive Date: 20241002
  Receipt Date: 20241002
  Transmission Date: 20250115
  Serious: Yes (Life-Threatening, Hospitalization, Other)
  Sender: CHATTEM
  Company Number: US-OPELLA-2024OHG033654

PATIENT
  Age: 19 Year
  Sex: Female

DRUGS (1)
  1. DIPHENHYDRAMINE [Suspect]
     Active Substance: DIPHENHYDRAMINE
     Indication: Product used for unknown indication
     Dosage: (THREE HUNDRED TABLET CONTAINER)
     Route: 065

REACTIONS (8)
  - Seizure [Unknown]
  - Cardiac arrest [Unknown]
  - Acute kidney injury [Unknown]
  - Acute hepatic failure [Unknown]
  - Confusional state [Unknown]
  - International normalised ratio increased [Unknown]
  - Ventricular tachycardia [Unknown]
  - Overdose [Unknown]
